FAERS Safety Report 9527081 (Version 1)
Quarter: 2013Q3

REPORT INFORMATION
  Report Type: Spontaneous
  Country: US (occurrence: US)
  Receive Date: 20130916
  Receipt Date: 20130916
  Transmission Date: 20140515
  Serious: No
  Sender: FDA-Public Use
  Company Number: US-TEVA-395943USA

PATIENT
  Sex: Female

DRUGS (5)
  1. FOLINIC ACID [Suspect]
     Dosage: EVERY CYCLE; 1 DAY
     Route: 041
  2. AVASTIN [Suspect]
     Dosage: EVERY CYCLE; 1 DAY
     Route: 041
  3. FLUOROURACIL [Suspect]
     Dosage: EVERY CYCLE; 1 DAY
     Route: 041
  4. IRINOTECAN [Suspect]
     Dosage: EVERY CYCLE; 1 DAY
     Route: 041
  5. ZALTRAP (AFLIBERCEPT) (SOLUTION FOR INFUSION) (AFLIBERCEPT) [Suspect]
     Indication: HYPERTENSION

REACTIONS (3)
  - Proteinuria [Unknown]
  - Hypertension [Unknown]
  - Diarrhoea [Unknown]
